FAERS Safety Report 26147930 (Version 1)
Quarter: 2025Q4

REPORT INFORMATION
  Report Type: Spontaneous
  Country: US (occurrence: US)
  Receive Date: 20251212
  Receipt Date: 20251212
  Transmission Date: 20260117
  Serious: Yes (Other)
  Sender: ROCHE
  Company Number: US-ROCHE-10000454981

PATIENT
  Sex: Male

DRUGS (1)
  1. OCRELIZUMAB [Suspect]
     Active Substance: OCRELIZUMAB
     Indication: Multiple sclerosis

REACTIONS (1)
  - Multiple sclerosis [Unknown]
